FAERS Safety Report 5414804-X (Version None)
Quarter: 2007Q3

REPORT INFORMATION
  Report Type: 
  Country: None (occurrence: None)
  Receive Date: 20070814
  Receipt Date: 20070725
  Transmission Date: 20080115
  Serious: Yes (Hospitalization)
  Sender: FDA-Public Use
  Company Number: TRP_0872_2006

PATIENT
  Sex: Male
  Weight: 10.0245 kg

DRUGS (11)
  1. RIBASPHERE [Suspect]
     Indication: HEPATITIS C
     Dosage: (1000 MG QD ORAL), (600 MG QD ORAL), (800 MG QD ORAL), (1000 MG QD ORAL)
     Route: 048
     Dates: start: 20041021, end: 20050504
  2. RIBASPHERE [Suspect]
     Indication: HEPATITIS C
     Dosage: (1000 MG QD ORAL), (600 MG QD ORAL), (800 MG QD ORAL), (1000 MG QD ORAL)
     Route: 048
     Dates: start: 20050504, end: 20050521
  3. RIBASPHERE [Suspect]
     Indication: HEPATITIS C
     Dosage: (1000 MG QD ORAL), (600 MG QD ORAL), (800 MG QD ORAL), (1000 MG QD ORAL)
     Route: 048
     Dates: start: 20050521, end: 20050808
  4. RIBASPHERE [Suspect]
     Indication: HEPATITIS C
     Dosage: (1000 MG QD ORAL), (600 MG QD ORAL), (800 MG QD ORAL), (1000 MG QD ORAL)
     Route: 048
     Dates: start: 20050808, end: 20050926
  5. PEGASYS [Suspect]
     Indication: HEPATITIS C
     Dosage: (180 UG 1X/WEEK SUBCUTANEOUS, (90 UG 1X/WEEK SUBCUTANEOUS), (180 UG 1X/WEEK SUBCUTANEOUS)
     Route: 058
     Dates: start: 20041021, end: 20050504
  6. PEGASYS [Suspect]
     Indication: HEPATITIS C
     Dosage: (180 UG 1X/WEEK SUBCUTANEOUS, (90 UG 1X/WEEK SUBCUTANEOUS), (180 UG 1X/WEEK SUBCUTANEOUS)
     Route: 058
     Dates: start: 20050504, end: 20050511
  7. PEGASYS [Suspect]
     Indication: HEPATITIS C
     Dosage: (180 UG 1X/WEEK SUBCUTANEOUS, (90 UG 1X/WEEK SUBCUTANEOUS), (180 UG 1X/WEEK SUBCUTANEOUS)
     Route: 058
     Dates: start: 20050511, end: 20050921
  8. METHADONE HCL [Suspect]
     Indication: DRUG DEPENDENCE
     Dosage: (DF)
  9. ASACOL [Concomitant]
  10. PRENATAL VITAMINS [Concomitant]
  11. NICODERM [Concomitant]

REACTIONS (2)
  - DRUG EXPOSURE DURING PREGNANCY [None]
  - DRUG WITHDRAWAL SYNDROME NEONATAL [None]
